FAERS Safety Report 6416552-6 (Version None)
Quarter: 2009Q4

REPORT INFORMATION
  Report Type: 
  Country: None (occurrence: None)
  Receive Date: 20091027
  Receipt Date: 20091023
  Transmission Date: 20100525
  Serious: Yes (Death)
  Sender: FDA-Public Use
  Company Number: PHHY2009BE46449

PATIENT

DRUGS (1)
  1. ACLASTA [Suspect]
     Dosage: 5 MG, UNK
     Route: 042

REACTIONS (1)
  - DEATH [None]
